FAERS Safety Report 6192522-0 (Version None)
Quarter: 2009Q2

REPORT INFORMATION
  Report Type: 
  Country: None (occurrence: None)
  Receive Date: 20090518
  Receipt Date: 20090504
  Transmission Date: 20091009
  Serious: Yes (Other)
  Sender: FDA-Public Use
  Company Number: DE-AMGEN-US345921

PATIENT
  Sex: Female

DRUGS (4)
  1. ENBREL [Suspect]
     Indication: ANKYLOSING SPONDYLITIS
     Route: 058
     Dates: start: 20051019
  2. DECORTIN [Suspect]
     Indication: ANKYLOSING SPONDYLITIS
     Dosage: 15 MG/DAY
     Route: 048
     Dates: start: 20090217, end: 20090305
  3. DECORTIN [Suspect]
     Dosage: 7.5 MG/WEEK
     Route: 048
     Dates: start: 20090306, end: 20090330
  4. DECORTIN [Suspect]
     Dosage: 2.5 MG/WEEK
     Route: 048
     Dates: start: 20090331, end: 20090408

REACTIONS (2)
  - ABORTION SPONTANEOUS [None]
  - DRUG EXPOSURE DURING PREGNANCY [None]
